FAERS Safety Report 24896544 (Version 2)
Quarter: 2025Q1

REPORT INFORMATION
  Report Type: Spontaneous
  Country: US (occurrence: US)
  Receive Date: 20250128
  Receipt Date: 20250206
  Transmission Date: 20250408
  Serious: No
  Sender: SANOFI AVENTIS
  Company Number: US-SA-2025SA025459

PATIENT
  Age: 30 Year
  Sex: Female
  Weight: 79.55 kg

DRUGS (10)
  1. DUPIXENT [Suspect]
     Active Substance: DUPILUMAB
     Indication: Dermatitis atopic
     Dosage: 300 MG, QOW
     Route: 058
     Dates: start: 202407, end: 202411
  2. PHENAZOPYRIDINE [Concomitant]
     Active Substance: PHENAZOPYRIDINE
  3. IBUPROFEN [Concomitant]
     Active Substance: IBUPROFEN
  4. FLUCONAZOLE [Concomitant]
     Active Substance: FLUCONAZOLE
  5. ONDANSETRON [Concomitant]
     Active Substance: ONDANSETRON
  6. ARNUITY ELLIPTA [Concomitant]
     Active Substance: FLUTICASONE FUROATE
  7. TRETINOIN [Concomitant]
     Active Substance: TRETINOIN
  8. AZELAIC ACID [Concomitant]
     Active Substance: AZELAIC ACID
  9. METRONIDAZOLE [Concomitant]
     Active Substance: METRONIDAZOLE
  10. ACETAMINOPHEN AND CODEINE [Concomitant]
     Active Substance: ACETAMINOPHEN\CODEINE PHOSPHATE

REACTIONS (1)
  - Maternal exposure during pregnancy [Unknown]

NARRATIVE: CASE EVENT DATE: 20240101
